FAERS Safety Report 14912038 (Version 1)
Quarter: 2018Q2

REPORT INFORMATION
  Report Type: Spontaneous
  Country: US (occurrence: US)
  Receive Date: 20180430
  Receipt Date: 20180430
  Transmission Date: 20180711
  Serious: Yes (Other)
  Sender: FDA-Public Use
  Company Number: None

PATIENT
  Age: 3 Year
  Sex: Male
  Weight: 13.5 kg

DRUGS (1)
  1. MIRALAX [Suspect]
     Active Substance: POLYETHYLENE GLYCOL 3350
     Indication: CONSTIPATION
     Dosage: ?          QUANTITY:1 TABLESPOON(S);?
     Route: 048
     Dates: start: 20170704, end: 20180209

REACTIONS (6)
  - Speech disorder [None]
  - Abnormal behaviour [None]
  - Anger [None]
  - Aggression [None]
  - Mood swings [None]
  - Decreased activity [None]

NARRATIVE: CASE EVENT DATE: 20180208
